FAERS Safety Report 4894429-5 (Version None)
Quarter: 2005Q4

REPORT INFORMATION
  Report Type: 
  Country: None (occurrence: None)
  Receive Date: 20051230
  Receipt Date: 20051214
  Transmission Date: 20060501
  Serious: Yes (Hospitalization)
  Sender: FDA-Public Use
  Company Number: 428517

PATIENT
  Age: 35 Year
  Sex: Male
  Weight: 97 kg

DRUGS (4)
  1. INTERFERON ALFA (INTERFERON ALFA) [Suspect]
     Indication: HEPATITIS C
     Dates: end: 20030906
  2. INTERFERON BETA (INTERFERON BETA) [Suspect]
     Indication: HEPATITIS C
     Dosage: 2 PER DAY
     Dates: start: 20030312
  3. RIBAVIRIN [Suspect]
     Indication: HEPATITIS C
     Dates: end: 20030906
  4. INTERFERON NOS (INTERFERON NOS) [Suspect]
     Indication: HEPATITIS C

REACTIONS (5)
  - DIABETES MELLITUS NON-INSULIN-DEPENDENT [None]
  - HEPATIC FIBROSIS [None]
  - HEPATIC STEATOSIS [None]
  - HYPERINSULINAEMIA [None]
  - LYMPHOCYTIC INFILTRATION [None]
